FAERS Safety Report 11997591 (Version 1)
Quarter: 2016Q1

REPORT INFORMATION
  Report Type: Spontaneous
  Country: BE (occurrence: BE)
  Receive Date: 20160203
  Receipt Date: 20160203
  Transmission Date: 20160526
  Serious: Yes (Other)
  Sender: FDA-Public Use
  Company Number: BE-GILEAD-2015-0164022

PATIENT
  Age: 31 Year
  Sex: Female
  Weight: 66.4 kg

DRUGS (2)
  1. VIREAD [Suspect]
     Active Substance: TENOFOVIR DISOPROXIL FUMARATE
     Indication: HEPATITIS B
     Dosage: 245 MG, UNK
     Route: 048
     Dates: start: 20151001, end: 20151217
  2. OXYTOCINE [Concomitant]
     Dosage: UNK
     Dates: start: 20151216, end: 20151217

REACTIONS (2)
  - Maternal exposure during pregnancy [Recovered/Resolved]
  - Foetal distress syndrome [Unknown]

NARRATIVE: CASE EVENT DATE: 20150326
